FAERS Safety Report 13539792 (Version 1)
Quarter: 2017Q2

REPORT INFORMATION
  Report Type: Spontaneous
  Country: US (occurrence: US)
  Receive Date: 20170512
  Receipt Date: 20170512
  Transmission Date: 20170830
  Serious: Yes (Other)
  Sender: FDA-Public Use
  Company Number: US-JNJFOC-20151008470

PATIENT
  Sex: Male

DRUGS (13)
  1. INVEGA SUSTENNA [Suspect]
     Active Substance: PALIPERIDONE PALMITATE
     Indication: HALLUCINATION, AUDITORY
     Route: 030
     Dates: start: 2010, end: 2011
  2. INVEGA SUSTENNA [Suspect]
     Active Substance: PALIPERIDONE PALMITATE
     Indication: HALLUCINATION, VISUAL
     Dosage: 117 MG (0.75 ML)
     Route: 030
     Dates: start: 2013, end: 20130619
  3. INVEGA SUSTENNA [Suspect]
     Active Substance: PALIPERIDONE PALMITATE
     Indication: HALLUCINATION, AUDITORY
     Dosage: 117 MG (0.75 ML)
     Route: 030
     Dates: start: 2013, end: 20130619
  4. INVEGA SUSTENNA [Suspect]
     Active Substance: PALIPERIDONE PALMITATE
     Indication: HALLUCINATION, AUDITORY
     Dosage: VARYING DOSES OF 156 MG, 117 MG (0.75 ML), 78 MG (0.5 ML)
     Route: 030
     Dates: start: 2011, end: 2013
  5. INVEGA SUSTENNA [Suspect]
     Active Substance: PALIPERIDONE PALMITATE
     Indication: ABNORMAL BEHAVIOUR
     Route: 030
     Dates: start: 2010, end: 2011
  6. INVEGA SUSTENNA [Suspect]
     Active Substance: PALIPERIDONE PALMITATE
     Indication: ABNORMAL BEHAVIOUR
     Dosage: VARYING DOSES OF 156 MG, 117 MG (0.75 ML), 78 MG (0.5 ML)
     Route: 030
     Dates: start: 2011, end: 2013
  7. RISPERDAL [Suspect]
     Active Substance: RISPERIDONE
     Indication: HALLUCINATION, AUDITORY
     Route: 048
     Dates: start: 2005, end: 20101115
  8. RISPERDAL [Suspect]
     Active Substance: RISPERIDONE
     Indication: HALLUCINATION, VISUAL
     Route: 048
     Dates: start: 2005, end: 20101115
  9. RISPERDAL [Suspect]
     Active Substance: RISPERIDONE
     Indication: ABNORMAL BEHAVIOUR
     Route: 048
     Dates: start: 2005, end: 20101115
  10. INVEGA SUSTENNA [Suspect]
     Active Substance: PALIPERIDONE PALMITATE
     Indication: HALLUCINATION, VISUAL
     Route: 030
     Dates: start: 2010, end: 2011
  11. INVEGA SUSTENNA [Suspect]
     Active Substance: PALIPERIDONE PALMITATE
     Indication: HALLUCINATION, VISUAL
     Dosage: VARYING DOSES OF 156 MG, 117 MG (0.75 ML), 78 MG (0.5 ML)
     Route: 030
     Dates: start: 2011, end: 2013
  12. INVEGA SUSTENNA [Suspect]
     Active Substance: PALIPERIDONE PALMITATE
     Indication: ABNORMAL BEHAVIOUR
     Dosage: 117 MG (0.75 ML)
     Route: 030
     Dates: start: 2013, end: 20130619
  13. RISPERIDONE. [Suspect]
     Active Substance: RISPERIDONE
     Indication: PRODUCT USED FOR UNKNOWN INDICATION
     Route: 048

REACTIONS (2)
  - Gynaecomastia [Unknown]
  - Abnormal weight gain [Unknown]

NARRATIVE: CASE EVENT DATE: 2005
